FAERS Safety Report 20920519 (Version 1)
Quarter: 2022Q2

REPORT INFORMATION
  Report Type: Spontaneous
  Country: US (occurrence: US)
  Receive Date: 20220606
  Receipt Date: 20220606
  Transmission Date: 20220720
  Serious: No
  Sender: FDA-Public Use
  Company Number: US-PFIZER INC-202200797508

PATIENT

DRUGS (1)
  1. PAXLOVID [Suspect]
     Active Substance: NIRMATRELVIR\RITONAVIR
     Indication: COVID-19 treatment
     Dosage: UNK

REACTIONS (10)
  - Asymptomatic COVID-19 [Unknown]
  - Disease recurrence [Unknown]
  - Asthenia [Unknown]
  - Feeling abnormal [Unknown]
  - Illness [Unknown]
  - Insomnia [Unknown]
  - Oral fungal infection [Unknown]
  - Dysgeusia [Unknown]
  - Tongue discolouration [Unknown]
  - Intentional dose omission [Unknown]
